FAERS Safety Report 6335207-X (Version None)
Quarter: 2009Q3

REPORT INFORMATION
  Report Type: 
  Country: None (occurrence: None)
  Receive Date: 20090831
  Receipt Date: 20090819
  Transmission Date: 20100115
  Serious: Yes (Hospitalization)
  Sender: FDA-Public Use
  Company Number: ES-PFIZER INC-2009260016

PATIENT
  Age: 40 Year

DRUGS (1)
  1. HYDROXYZINE HCL [Suspect]
     Indication: RASH
     Dosage: 25 MG, 1X/DAY
     Route: 048
     Dates: start: 20080601, end: 20090701

REACTIONS (1)
  - PANCREATITIS ACUTE [None]
